FAERS Safety Report 13333821 (Version 2)
Quarter: 2017Q1

REPORT INFORMATION
  Report Type: Report from Study
  Country: AU (occurrence: AU)
  Receive Date: 20170313
  Receipt Date: 20170317
  Transmission Date: 20170428
  Serious: Yes (Other)
  Sender: FDA-Public Use
  Company Number: AU-REGENERON PHARMACEUTICALS, INC.-2017-13052

PATIENT

DRUGS (2)
  1. EYLEA [Suspect]
     Active Substance: AFLIBERCEPT
     Indication: NEOVASCULAR AGE-RELATED MACULAR DEGENERATION
     Dosage: Q6WK
     Route: 031
     Dates: start: 20150301
  2. EYLEA [Suspect]
     Active Substance: AFLIBERCEPT
     Dosage: Q1MON
     Route: 031

REACTIONS (1)
  - Neovascular age-related macular degeneration [Unknown]
